FAERS Safety Report 15135000 (Version 1)
Quarter: 2018Q3

REPORT INFORMATION
  Report Type: Spontaneous
  Country: GB (occurrence: GB)
  Receive Date: 20180712
  Receipt Date: 20180712
  Transmission Date: 20181010
  Serious: Yes (Other)
  Sender: FDA-Public Use
  Company Number: GB-PFIZER INC-2018277024

PATIENT
  Age: 50 Year
  Sex: Female
  Weight: 96 kg

DRUGS (24)
  1. OTOMIZE [Concomitant]
     Active Substance: DEXAMETHASONE\NEOMYCIN SULFATE
     Dosage: 3 DF, 1X/DAY
     Dates: start: 20170920, end: 20170921
  2. FEXOFENADINE [Concomitant]
     Active Substance: FEXOFENADINE\FEXOFENADINE HYDROCHLORIDE
     Dosage: UNK, 2X/DAY (1 OR 2 TWICE DAILY)
     Dates: start: 20060623
  3. DOCUSATE SODIUM. [Concomitant]
     Active Substance: DOCUSATE SODIUM
     Dosage: 4 DF, 1X/DAY
     Dates: start: 20071126
  4. SHORTEC [Concomitant]
     Dosage: 4 DF, 3X/DAY (TAKE UP TO 4 (80MG) 3 TIMES A DAY)
     Dates: start: 20150824
  5. DUROGESIC [Concomitant]
     Active Substance: FENTANYL
     Dosage: 4 DF, UNK
     Dates: start: 20081016, end: 20170925
  6. DOXYCYCLINE MONOHYDRATE [Suspect]
     Active Substance: DOXYCYCLINE
     Dosage: UNK
     Dates: start: 20171015
  7. TEARS NATURALE /00134201/ [Concomitant]
     Indication: DRY EYE
     Dosage: 1 GTT, 3?4 TIMES DAILY
     Dates: start: 20141125
  8. GAVISCON ADVANCE [Concomitant]
     Active Substance: POTASSIUM BICARBONATE\SODIUM ALGINATE
     Dosage: UNK, 4X/DAY
     Dates: start: 20151023
  9. CLONAZEPAM. [Concomitant]
     Active Substance: CLONAZEPAM
     Dosage: 2 DF, 1X/DAY (AT NIGHT)
     Dates: start: 20060623
  10. SALBUTAMOL [Concomitant]
     Active Substance: ALBUTEROL
     Dosage: 2 DF, UNK
     Route: 055
     Dates: start: 20060623
  11. CELECOXIB. [Concomitant]
     Active Substance: CELECOXIB
     Dosage: 1 DF, 1X/DAY
     Dates: start: 20160128
  12. METRONIDAZOLE. [Concomitant]
     Active Substance: METRONIDAZOLE
     Dosage: 2 DF, 1X/DAY APPLIED
     Dates: start: 20171005
  13. OMEPRAZOLE. [Concomitant]
     Active Substance: OMEPRAZOLE
     Dosage: 1 DF, 1X/DAY
     Dates: start: 20121026
  14. FULTIUM D3 [Concomitant]
     Active Substance: CHOLECALCIFEROL
     Dosage: 1 DF, 1X/DAY
     Dates: start: 20130417
  15. DULOXETINE. [Concomitant]
     Active Substance: DULOXETINE
     Dosage: 2 DF, 1X/DAY (AT NIGHT)
     Dates: start: 20071203
  16. AZELAIC ACID. [Concomitant]
     Active Substance: AZELAIC ACID
     Dosage: APPLY TO RED SPOTTY AREAS OF CHEEKS.
     Dates: start: 20170831, end: 20170930
  17. ERYTHROMYCIN. [Concomitant]
     Active Substance: ERYTHROMYCIN
     Dosage: 4 DF, 1X/DAY
     Dates: start: 20170906, end: 20170913
  18. CLENIL MODULITE [Concomitant]
     Active Substance: BECLOMETHASONE DIPROPIONATE
     Dosage: 4 DF, 1X/DAY
     Route: 055
     Dates: start: 20171009
  19. BISACODYL. [Concomitant]
     Active Substance: BISACODYL
     Dosage: 2 DF, 1X/DAY (AT NIGHT)
     Dates: start: 20090223
  20. PROMETHAZINE HYDROCHLORIDE. [Concomitant]
     Active Substance: PROMETHAZINE HYDROCHLORIDE
     Indication: INSOMNIA
     Dosage: UNK
     Dates: start: 20170818
  21. MIRTAZAPINE. [Concomitant]
     Active Substance: MIRTAZAPINE
     Dosage: 2 DF, 1X/DAY (AT NIGHT AS DIRECTED BY SPECIALIST)
     Dates: start: 20170216
  22. LONGTEC [Concomitant]
     Active Substance: OXYCODONE HYDROCHLORIDE
     Dosage: 1 DF, TAKE ONE IN PLACE OF FIRST ONE.
     Dates: start: 20170925
  23. AMITRIPTYLINE HYDROCHLORIDE. [Concomitant]
     Active Substance: AMITRIPTYLINE HYDROCHLORIDE
     Dosage: 4 DF, 1X/DAY (AT NIGHT.)
     Dates: start: 20170208
  24. ACETIC ACID. [Concomitant]
     Active Substance: ACETIC ACID
     Dosage: 1 DF, THREE TIMES A DAY AS NEEDED
     Dates: start: 20171005, end: 20171012

REACTIONS (2)
  - Lip swelling [Recovered/Resolved]
  - Hypersensitivity [Unknown]

NARRATIVE: CASE EVENT DATE: 20171015
